FAERS Safety Report 17718049 (Version 4)
Quarter: 2020Q2

REPORT INFORMATION
  Report Type: Report from Study
  Country: CA (occurrence: CA)
  Receive Date: 20200428
  Receipt Date: 20200506
  Transmission Date: 20200714
  Serious: Yes (Other)
  Sender: FDA-Public Use
  Company Number: CA-NALPROPION PHARMACEUTICALS INC.-2020-010101

PATIENT

DRUGS (2)
  1. CONTRAVE [Suspect]
     Active Substance: BUPROPION HYDROCHLORIDE\NALTREXONE HYDROCHLORIDE
     Indication: WEIGHT CONTROL
     Dosage: STRENGTH: 90/8 MG (1 TABLET IN THE MORNING)
     Route: 048
     Dates: start: 20200416, end: 20200417
  2. TEVA PROGESTERONE [Concomitant]
     Active Substance: PROGESTERONE
     Indication: HORMONE REPLACEMENT THERAPY
     Dosage: 200 MG, 1 IN 1 D
     Route: 048

REACTIONS (13)
  - Gait inability [Unknown]
  - Hunger [Unknown]
  - Headache [Recovered/Resolved]
  - Autoscopy [Unknown]
  - Pruritus [Unknown]
  - Snoring [Unknown]
  - Drug intolerance [Unknown]
  - Agitation [Unknown]
  - Tremor [Unknown]
  - Insomnia [Unknown]
  - Muscular weakness [Unknown]
  - Feeling abnormal [Unknown]
  - Therapy cessation [Unknown]

NARRATIVE: CASE EVENT DATE: 20200416
